FAERS Safety Report 7397795-4 (Version None)
Quarter: 2011Q2

REPORT INFORMATION
  Report Type: 
  Country: None (occurrence: None)
  Receive Date: 20110406
  Receipt Date: 20110331
  Transmission Date: 20111010
  Serious: Yes (Other)
  Sender: FDA-Public Use
  Company Number: US-PFIZER INC-2011072021

PATIENT
  Sex: Female
  Weight: 58.957 kg

DRUGS (5)
  1. LYRICA [Suspect]
     Indication: PAIN
     Dosage: 75 MG, 2X/DAY
     Route: 048
     Dates: start: 20110318
  2. TRAMADOL [Concomitant]
     Indication: PAIN
     Dosage: UNK
  3. FLEXERIL [Concomitant]
     Indication: PAIN
     Dosage: UNK
  4. VICODIN [Concomitant]
     Indication: PAIN
     Dosage: UNK
  5. XANAX [Concomitant]
     Indication: ANXIETY
     Dosage: UNK

REACTIONS (9)
  - HYPERSOMNIA [None]
  - LOCALISED OEDEMA [None]
  - INSOMNIA [None]
  - MUSCULOSKELETAL CHEST PAIN [None]
  - WEIGHT INCREASED [None]
  - DIZZINESS [None]
  - SWELLING [None]
  - DRY MOUTH [None]
  - HYPERPHAGIA [None]
